FAERS Safety Report 5022371-8 (Version None)
Quarter: 2006Q2

REPORT INFORMATION
  Report Type: 
  Country: None (occurrence: None)
  Receive Date: 20060605
  Receipt Date: 20060519
  Transmission Date: 20061013
  Serious: Yes (Death, Other)
  Sender: FDA-Public Use
  Company Number: 430002L05FRA

PATIENT
  Age: 51 Year
  Sex: Female

DRUGS (3)
  1. MITOXANTRONE [Suspect]
     Indication: SECONDARY PROGRESSIVE MULTIPLE SCLEROSIS
     Dosage: 20 MG
     Dates: start: 19990801, end: 20000401
  2. AZATHIOPRINE [Suspect]
     Dates: start: 20000501, end: 20011101
  3. INTERFERON BETA [Concomitant]

REACTIONS (8)
  - ACUTE MYELOID LEUKAEMIA [None]
  - ANAEMIA [None]
  - CHROMOSOME ABNORMALITY [None]
  - HAEMORRHAGIC DISORDER [None]
  - LUNG DISORDER [None]
  - NEUTROPENIA [None]
  - SEPTIC SHOCK [None]
  - THROMBOCYTOPENIA [None]
